FAERS Safety Report 16893566 (Version 2)
Quarter: 2019Q4

REPORT INFORMATION
  Report Type: Spontaneous
  Country: US (occurrence: US)
  Receive Date: 20191008
  Receipt Date: 20191125
  Transmission Date: 20200122
  Serious: No
  Sender: FDA-Public Use
  Company Number: US-BAYER-2019-181614

PATIENT
  Age: 81 Year
  Sex: Female
  Weight: 83 kg

DRUGS (4)
  1. STOOL SOFTENER (DOCUSATE) [Concomitant]
     Active Substance: DOCUSATE
     Dosage: UNK
  2. MIRALAX [Suspect]
     Active Substance: POLYETHYLENE GLYCOL 3350
     Indication: CONSTIPATION
     Dosage: 1 DF, QD
     Route: 048
     Dates: start: 20191005, end: 20191007
  3. MIRALAX [Suspect]
     Active Substance: POLYETHYLENE GLYCOL 3350
     Indication: CONSTIPATION
     Dosage: 1 DF, QD
     Dates: start: 201910, end: 20191007
  4. PRUNELAX [PRUNUS SPP.;SENNA SPP. LEAF] [Concomitant]
     Dosage: UNK

REACTIONS (6)
  - Abdominal discomfort [Recovering/Resolving]
  - Spinal operation [None]
  - Product solubility abnormal [None]
  - Off label use [Unknown]
  - Product use in unapproved indication [None]
  - Product taste abnormal [None]

NARRATIVE: CASE EVENT DATE: 201910
